FAERS Safety Report 5346580-3 (Version None)
Quarter: 2007Q2

REPORT INFORMATION
  Report Type: 
  Country: None (occurrence: None)
  Receive Date: 20070430
  Receipt Date: 20070307
  Transmission Date: 20071010
  Serious: No
  Sender: FDA-Public Use
  Company Number: 261676

PATIENT
  Sex: Female

DRUGS (2)
  1. LEVEMIR [Suspect]
     Indication: INSULIN-REQUIRING TYPE II DIABETES MELLITUS
     Dosage: 30 IU, QD, SUBCUTANEOUS
     Route: 058
     Dates: start: 20070201, end: 20070201
  2. GLIPIZIDE [Concomitant]

REACTIONS (3)
  - CHEST PAIN [None]
  - STOMACH DISCOMFORT [None]
  - THROAT IRRITATION [None]
